FAERS Safety Report 4914364-3 (Version None)
Quarter: 2006Q1

REPORT INFORMATION
  Report Type: 
  Country: None (occurrence: None)
  Receive Date: 20060213
  Receipt Date: 20060201
  Transmission Date: 20060701
  Serious: Yes (Other)
  Sender: FDA-Public Use
  Company Number: 2006AP000071

PATIENT
  Age: 10 Year
  Sex: Male
  Weight: 34.0198 kg

DRUGS (2)
  1. OXYBUTYNIN CHLORIDE SYRUP (5 MG/5ML) [Suspect]
     Indication: ENURESIS
     Dosage: 3.75 MG; BID; PO
     Route: 048
     Dates: start: 20051223, end: 20051228
  2. STRATTERA [Suspect]
     Indication: ATTENTION DEFICIT/HYPERACTIVITY DISORDER
     Dosage: 40 MG; BID; PO
     Route: 048
     Dates: start: 20040101

REACTIONS (15)
  - DRUG INTERACTION [None]
  - DYSPNOEA [None]
  - EXTRAPYRAMIDAL DISORDER [None]
  - FACIAL PAIN [None]
  - FACIAL SPASM [None]
  - MENTAL RETARDATION SEVERITY UNSPECIFIED [None]
  - MUSCLE SPASMS [None]
  - MUSCULOSKELETAL DISORDER [None]
  - NECK PAIN [None]
  - PAIN IN JAW [None]
  - SPEECH DISORDER [None]
  - SWELLING FACE [None]
  - TACHYCARDIA [None]
  - TENDERNESS [None]
  - TRISMUS [None]
